FAERS Safety Report 6002734-4 (Version None)
Quarter: 2008Q4

REPORT INFORMATION
  Report Type: 
  Country: None (occurrence: None)
  Receive Date: 20081212
  Receipt Date: 20081022
  Transmission Date: 20090506
  Serious: Yes (Death, Hospitalization)
  Sender: FDA-Public Use
  Company Number: 2006BM000194

PATIENT
  Age: 52 Year
  Sex: Female
  Weight: 55 kg

DRUGS (11)
  1. NAGLAZYME [Suspect]
     Indication: MUCOPOLYSACCHARIDOSIS VI
     Dosage: 1 MG/KG;QW; IVDRP
     Route: 041
     Dates: start: 20060816, end: 20061206
  2. WARFARIN SODIUM [Concomitant]
  3. LASIX [Concomitant]
  4. POTASSIUM CHLORIDE [Concomitant]
  5. RANITIDINE [Concomitant]
  6. ATENOLOL [Concomitant]
  7. ALLEGRA [Concomitant]
  8. NIFEREX [Concomitant]
  9. COLACE [Concomitant]
  10. ESTRADERM [Concomitant]
  11. VICODIN [Concomitant]

REACTIONS (9)
  - CARDIO-RESPIRATORY ARREST [None]
  - HYPOTENSION [None]
  - HYPOXIA [None]
  - MYOCARDIAL INFARCTION [None]
  - NAUSEA [None]
  - PNEUMONIA ASPIRATION [None]
  - PULMONARY EMBOLISM [None]
  - TYPE IV HYPERSENSITIVITY REACTION [None]
  - VOMITING [None]
